FAERS Safety Report 15532097 (Version 2)
Quarter: 2018Q4

REPORT INFORMATION
  Report Type: Spontaneous
  Country: FR (occurrence: FR)
  Receive Date: 20181019
  Receipt Date: 20181101
  Transmission Date: 20190205
  Serious: Yes (Congenital Anomaly)
  Sender: FDA-Public Use
  Company Number: FR-BAUSCH-BL-2018-028314

PATIENT
  Sex: Female
  Weight: 2.77 kg

DRUGS (9)
  1. AERIUS (DESLORATADINE) [Suspect]
     Active Substance: DESLORATADINE
     Indication: PRODUCT USED FOR UNKNOWN INDICATION
     Route: 064
     Dates: start: 20160914, end: 20170531
  2. AMLODIPINE [Suspect]
     Active Substance: AMLODIPINE BESYLATE
     Indication: PRODUCT USED FOR UNKNOWN INDICATION
     Route: 064
     Dates: start: 20160914, end: 20170214
  3. LOXEN (NICARDIPINE HYDROCHLORIDE) [Suspect]
     Active Substance: NICARDIPINE HYDROCHLORIDE
     Indication: PRODUCT USED FOR UNKNOWN INDICATION
     Dosage: TABLET BREAKABLE
     Route: 064
     Dates: start: 20170215, end: 20170531
  4. TRANDATE [Suspect]
     Active Substance: LABETALOL HYDROCHLORIDE
     Indication: PRODUCT USED FOR UNKNOWN INDICATION
     Route: 064
     Dates: start: 20170215, end: 20170531
  5. INDOCYANINE (VERT D^) [Suspect]
     Active Substance: INDOCYANINE GREEN
     Indication: PRODUCT USED FOR UNKNOWN INDICATION
     Dosage: IN TOTAL
     Route: 064
     Dates: start: 201609, end: 201609
  6. METFORMINE (CHLORHYDRATE DE) [Suspect]
     Active Substance: METFORMIN HYDROCHLORIDE
     Indication: PRODUCT USED FOR UNKNOWN INDICATION
     Route: 064
     Dates: start: 20160914, end: 20170214
  7. COAPROVEL [Suspect]
     Active Substance: HYDROCHLOROTHIAZIDE\IRBESARTAN
     Indication: PRODUCT USED FOR UNKNOWN INDICATION
     Dosage: 300 MG/25 MG
     Route: 064
     Dates: start: 20160914, end: 20170214
  8. FLUORESCEINE SODIUM [Suspect]
     Active Substance: FLUORESCEIN SODIUM
     Indication: PRODUCT USED FOR UNKNOWN INDICATION
     Dosage: IN TOTAL
     Route: 064
     Dates: start: 201609, end: 201609
  9. INSULINE [Concomitant]
     Active Substance: INSULIN NOS
     Indication: PRODUCT USED FOR UNKNOWN INDICATION

REACTIONS (3)
  - Haemangioma congenital [Not Recovered/Not Resolved]
  - Low birth weight baby [Unknown]
  - Patent ductus arteriosus [Recovered/Resolved]

NARRATIVE: CASE EVENT DATE: 20170531
